FAERS Safety Report 16895782 (Version 2)
Quarter: 2019Q4

REPORT INFORMATION
  Report Type: Spontaneous
  Country: CN (occurrence: CN)
  Receive Date: 20191008
  Receipt Date: 20191016
  Transmission Date: 20200122
  Serious: No
  Sender: FDA-Public Use
  Company Number: CN-ASTRAZENECA-2019SF42193

PATIENT
  Age: 60 Year
  Sex: Female
  Weight: 55 kg

DRUGS (2)
  1. IRESSA [Suspect]
     Active Substance: GEFITINIB
     Indication: NON-SMALL CELL LUNG CANCER
     Route: 048
  2. ZOLEDRONIC ACID [Concomitant]
     Active Substance: ZOLEDRONIC ACID
     Indication: METASTASES TO BONE
     Dosage: ONE INJECTION EVERY 20 DAYS,

REACTIONS (6)
  - Gene mutation [Unknown]
  - Diarrhoea [Recovering/Resolving]
  - Pruritus [Recovered/Resolved]
  - Drug resistance [Unknown]
  - Dyspepsia [Unknown]
  - Rash [Recovered/Resolved]
